FAERS Safety Report 10066777 (Version 1)
Quarter: 2014Q2

REPORT INFORMATION
  Report Type: Spontaneous
  Country: NL (occurrence: NL)
  Receive Date: 20140408
  Receipt Date: 20140408
  Transmission Date: 20141212
  Serious: Yes (Other)
  Sender: FDA-Public Use
  Company Number: PHHY2014NL041580

PATIENT
  Age: 23 Year
  Sex: Male

DRUGS (2)
  1. GLIVEC [Suspect]
     Indication: GASTROINTESTINAL STROMAL TUMOUR
     Dosage: 500 MG, UNK
     Dates: start: 2004
  2. GLIVEC [Suspect]
     Dosage: 800 MG, DAILY
     Dates: start: 2006

REACTIONS (1)
  - Osteoporosis [Unknown]
